FAERS Safety Report 9797996 (Version 1)
Quarter: 2014Q1

REPORT INFORMATION
  Report Type: Spontaneous
  Country: FR (occurrence: FR)
  Receive Date: 20140106
  Receipt Date: 20140106
  Transmission Date: 20141002
  Serious: Yes (Hospitalization)
  Sender: FDA-Public Use
  Company Number: FR-SA-2013SA135951

PATIENT
  Age: 81 Year
  Sex: Female

DRUGS (9)
  1. LASILIX [Suspect]
     Indication: HYPERTENSION
     Route: 048
     Dates: start: 2012, end: 20131124
  2. TAREG [Suspect]
     Indication: PRODUCT USED FOR UNKNOWN INDICATION
     Route: 048
     Dates: start: 2012, end: 20131124
  3. GLUCOPHAGE [Concomitant]
     Route: 048
     Dates: start: 200411, end: 20131124
  4. KREDEX [Concomitant]
     Dates: start: 2012
  5. TARDYFERON [Concomitant]
     Route: 048
     Dates: start: 20131015
  6. IMOVANE [Concomitant]
     Route: 048
     Dates: start: 2012
  7. INEXIUM [Concomitant]
     Route: 048
     Dates: start: 2012
  8. TAHOR [Concomitant]
     Route: 048
     Dates: start: 2012
  9. AMLOR [Concomitant]
     Route: 048
     Dates: start: 2012

REACTIONS (3)
  - Renal failure acute [Recovered/Resolved]
  - Vomiting [Recovered/Resolved]
  - Condition aggravated [Recovered/Resolved]
